FAERS Safety Report 12145260 (Version 1)
Quarter: 2016Q1

REPORT INFORMATION
  Report Type: Spontaneous
  Country: US (occurrence: None)
  Receive Date: 20160303
  Receipt Date: 20160303
  Transmission Date: 20160526
  Serious: No
  Sender: FDA-Public Use
  Company Number: None

PATIENT
  Age: 59 Year
  Sex: Female

DRUGS (11)
  1. PROCHLORPER [Concomitant]
  2. ZOLPIDEM [Concomitant]
     Active Substance: ZOLPIDEM\ZOLPIDEM TARTRATE
  3. IBRANCE [Suspect]
     Active Substance: PALBOCICLIB
     Indication: BREAST CANCER
     Dosage: 28 DAY CYCLE,  QD DAYS 1-21
     Route: 048
     Dates: start: 20160210
  4. CARISOPRODOL. [Concomitant]
     Active Substance: CARISOPRODOL
  5. PROAIR HFA [Concomitant]
     Active Substance: ALBUTEROL SULFATE
  6. HYDROMORPHON [Concomitant]
     Active Substance: HYDROMORPHONE
  7. XGEVA [Concomitant]
     Active Substance: DENOSUMAB
  8. FASLODEX [Concomitant]
     Active Substance: FULVESTRANT
  9. GENERLAC [Concomitant]
     Active Substance: LACTULOSE
  10. ONDANSETRON [Concomitant]
     Active Substance: ONDANSETRON
  11. OXYCODONE [Concomitant]
     Active Substance: OXYCODONE

REACTIONS (3)
  - Musculoskeletal discomfort [None]
  - White blood cell count decreased [None]
  - Myalgia [None]

NARRATIVE: CASE EVENT DATE: 201602
